FAERS Safety Report 6427769-9 (Version None)
Quarter: 2009Q4

REPORT INFORMATION
  Report Type: 
  Country: None (occurrence: None)
  Receive Date: 20091030
  Receipt Date: 20091021
  Transmission Date: 20100525
  Serious: Yes (Disabling)
  Sender: FDA-Public Use
  Company Number: OSCN-PR-0910L-0466

PATIENT
  Age: 62 Year
  Sex: Female

DRUGS (1)
  1. OMNISCAN [Suspect]
     Indication: MENTAL STATUS CHANGES
     Dosage: SINGLE DOSE

REACTIONS (2)
  - GAIT DISTURBANCE [None]
  - NEPHROGENIC SYSTEMIC FIBROSIS [None]
